FAERS Safety Report 12610101 (Version 15)
Quarter: 2022Q3

REPORT INFORMATION
  Report Type: Report from Study
  Country: DE (occurrence: DE)
  Receive Date: 20160801
  Receipt Date: 20220715
  Transmission Date: 20221027
  Serious: Yes (Hospitalization, Other)
  Sender: FDA-Public Use
  Company Number: PHHY2016DE084053

PATIENT
  Age: 29 Year
  Sex: Female
  Weight: 85 kg

DRUGS (5)
  1. GILENYA [Suspect]
     Active Substance: FINGOLIMOD HYDROCHLORIDE
     Indication: Multiple sclerosis
     Dosage: 0.5 MG, QD
     Route: 048
     Dates: start: 20160315, end: 20180110
  2. GILENYA [Suspect]
     Active Substance: FINGOLIMOD HYDROCHLORIDE
     Dosage: UNK
     Route: 048
     Dates: end: 20181012
  3. ETHINYL ESTRADIOL\LEVONORGESTREL [Concomitant]
     Active Substance: ETHINYL ESTRADIOL\LEVONORGESTREL
     Indication: Contraception
     Dosage: UNK UNK, QD
     Route: 065
     Dates: start: 201603
  4. METHYLPREDNISOLONE [Concomitant]
     Active Substance: METHYLPREDNISOLONE
     Indication: Multiple sclerosis relapse
     Dosage: 1200 MG, UNK
     Route: 065
     Dates: start: 20160409, end: 20160411
  5. TECFIDERA [Concomitant]
     Active Substance: DIMETHYL FUMARATE
     Indication: Product used for unknown indication
     Route: 065

REACTIONS (9)
  - Enteritis [Recovered/Resolved]
  - Abdominal discomfort [Unknown]
  - Abdominal pain upper [Unknown]
  - Pyrexia [Unknown]
  - Liver disorder [Not Recovered/Not Resolved]
  - Hypertension [Unknown]
  - Transaminases increased [Recovered/Resolved]
  - Cholelithiasis [Recovered/Resolved]
  - Haemangioma of liver [Not Recovered/Not Resolved]

NARRATIVE: CASE EVENT DATE: 20160425
